FAERS Safety Report 21366699 (Version 1)
Quarter: 2022Q3

REPORT INFORMATION
  Report Type: Spontaneous
  Country: US (occurrence: US)
  Receive Date: 20220923
  Receipt Date: 20220923
  Transmission Date: 20221027
  Serious: No
  Sender: FDA-Public Use
  Company Number: US-SANOFI-01272885

PATIENT
  Age: 87 Year
  Sex: Female

DRUGS (2)
  1. DUPIXENT [Suspect]
     Active Substance: DUPILUMAB
     Indication: Dermatitis atopic
     Dosage: 300 MG QOW
     Dates: start: 20220830
  2. DUPIXENT [Suspect]
     Active Substance: DUPILUMAB
     Dosage: 300 UNK
     Route: 058

REACTIONS (2)
  - Product use issue [Unknown]
  - Drug ineffective [Unknown]
